FAERS Safety Report 7551699-2 (Version None)
Quarter: 2011Q2

REPORT INFORMATION
  Report Type: 
  Country: None (occurrence: None)
  Receive Date: 20110616
  Receipt Date: 20110606
  Transmission Date: 20111010
  Serious: Yes (Death)
  Sender: FDA-Public Use
  Company Number: US-GENENTECH-319964

PATIENT

DRUGS (1)
  1. NUTROPIN AQ [Suspect]
     Indication: BLOOD GROWTH HORMONE
     Dosage: 10 MG, UNK
     Dates: start: 20060901

REACTIONS (1)
  - DEATH [None]
